FAERS Safety Report 24915471 (Version 1)
Quarter: 2025Q1

REPORT INFORMATION
  Report Type: Spontaneous
  Country: US (occurrence: US)
  Receive Date: 20250203
  Receipt Date: 20250203
  Transmission Date: 20250409
  Serious: Yes (Other)
  Sender: JOHNSON AND JOHNSON
  Company Number: US-JNJFOC-20241269072

PATIENT
  Age: 63 Year
  Sex: Female
  Weight: 59 kg

DRUGS (2)
  1. LAZCLUZE [Suspect]
     Active Substance: LAZERTINIB
     Indication: Lung neoplasm malignant
     Route: 048
  2. XARELTO [Suspect]
     Active Substance: RIVAROXABAN
     Indication: Product used for unknown indication
     Route: 048

REACTIONS (3)
  - Gastrointestinal haemorrhage [Unknown]
  - Blood iron decreased [Not Recovered/Not Resolved]
  - Diarrhoea [Not Recovered/Not Resolved]
